FAERS Safety Report 20815207 (Version 3)
Quarter: 2022Q2

REPORT INFORMATION
  Report Type: Spontaneous
  Country: US (occurrence: US)
  Receive Date: 20220511
  Receipt Date: 20220617
  Transmission Date: 20220721
  Serious: No
  Sender: FDA-Public Use
  Company Number: US-PFIZER INC-202200568643

PATIENT
  Age: 44 Year
  Sex: Female

DRUGS (5)
  1. XELJANZ [Suspect]
     Active Substance: TOFACITINIB CITRATE
     Indication: Colitis ulcerative
     Dosage: 5 MG, DAILY
     Route: 048
     Dates: start: 202102
  2. XELJANZ [Suspect]
     Active Substance: TOFACITINIB CITRATE
     Dosage: 10 MG, 2X/DAY
  3. XELJANZ [Suspect]
     Active Substance: TOFACITINIB CITRATE
     Dosage: 5 MG, 2X/DAY
     Dates: start: 202102
  4. DIPHENOXYLATE (CO) [Concomitant]
  5. DELZICOL [Concomitant]
     Active Substance: MESALAMINE

REACTIONS (9)
  - Diarrhoea [Not Recovered/Not Resolved]
  - Anal incontinence [Not Recovered/Not Resolved]
  - Condition aggravated [Unknown]
  - Abdominal pain [Unknown]
  - Drug ineffective [Unknown]
  - Thirst [Unknown]
  - Erythema [Recovered/Resolved]
  - Bowel movement irregularity [Not Recovered/Not Resolved]
  - Product dose omission issue [Unknown]

NARRATIVE: CASE EVENT DATE: 20220101
